FAERS Safety Report 26087272 (Version 1)
Quarter: 2025Q4

REPORT INFORMATION
  Report Type: Spontaneous
  Country: US (occurrence: None)
  Receive Date: 20251124
  Receipt Date: 20251124
  Transmission Date: 20260118
  Serious: Yes (Hospitalization)
  Sender: FDA-CTU
  Company Number: None

PATIENT
  Age: 57 Year
  Sex: Female

DRUGS (11)
  1. TEZSPIRE [Suspect]
     Active Substance: TEZEPELUMAB-EKKO
     Dosage: INJECT 1 PEN UNDER THE SKIN (SUBCUTANEOUS INJECTION) EVERY FOUR WEEKS?
     Route: 058
     Dates: start: 20240507
  2. AJOVY [Concomitant]
     Active Substance: FREMANEZUMAB-VFRM
  3. DILTIAZEM [Concomitant]
     Active Substance: DILTIAZEM
  4. EFFEXOR XR CAP [Concomitant]
  5. GABAPENTIN [Concomitant]
     Active Substance: GABAPENTIN
  6. KLONOPIN [Concomitant]
     Active Substance: CLONAZEPAM
  7. LASIX [Concomitant]
     Active Substance: FUROSEMIDE
  8. MONTELUKAST [Concomitant]
     Active Substance: MONTELUKAST
  9. PROTONIX [Concomitant]
     Active Substance: PANTOPRAZOLE SODIUM
  10. SEROQUEL [Concomitant]
     Active Substance: QUETIAPINE FUMARATE
  11. TOPAMAX [Concomitant]
     Active Substance: TOPIRAMATE

REACTIONS (1)
  - Self-destructive behaviour [None]

NARRATIVE: CASE EVENT DATE: 20251117
